FAERS Safety Report 15303946 (Version 1)
Quarter: 2018Q3

REPORT INFORMATION
  Report Type: Report from Study
  Country: US (occurrence: US)
  Receive Date: 20180821
  Receipt Date: 20180821
  Transmission Date: 20181010
  Serious: No
  Sender: FDA-Public Use
  Company Number: US-AMGEN INC.-USASP2018085384

PATIENT
  Age: 72 Year
  Sex: Female

DRUGS (4)
  1. NARATRIPTAN [Concomitant]
     Active Substance: NARATRIPTAN HYDROCHLORIDE
     Indication: MIGRAINE
     Dosage: 5 MG, UNK
     Dates: start: 20180620
  2. AIMOVIG [Suspect]
     Active Substance: ERENUMAB-AOOE
     Indication: MIGRAINE WITHOUT AURA
     Dosage: 140 MG (70 MG, TWO PEN), QMO
     Route: 065
     Dates: start: 20180620
  3. MAXALT [Concomitant]
     Active Substance: RIZATRIPTAN BENZOATE
     Dosage: UNK
  4. AIMOVIG [Suspect]
     Active Substance: ERENUMAB-AOOE
     Dosage: 140 MG (70 MG, TWO PEN), QMO
     Route: 065

REACTIONS (7)
  - Hunger [Unknown]
  - Injection site bruising [Unknown]
  - Injection site irritation [Unknown]
  - Drug effect incomplete [Unknown]
  - Abdominal discomfort [Unknown]
  - Injection site erythema [Unknown]
  - Constipation [Unknown]

NARRATIVE: CASE EVENT DATE: 20180620
